FAERS Safety Report 26150828 (Version 1)
Quarter: 2025Q4

REPORT INFORMATION
  Report Type: Spontaneous
  Country: US (occurrence: US)
  Receive Date: 20251212
  Receipt Date: 20251212
  Transmission Date: 20260119
  Serious: Yes (Hospitalization)
  Sender: AMGEN
  Company Number: US-AMGEN-USASP2025243358

PATIENT
  Age: 61 Year
  Sex: Female

DRUGS (4)
  1. PROLIA [Suspect]
     Active Substance: DENOSUMAB
     Indication: Product used for unknown indication
     Dosage: UNK
     Route: 065
  2. ANASTROZOLE [Concomitant]
     Active Substance: ANASTROZOLE
  3. RIBOCICLIB [Concomitant]
     Active Substance: RIBOCICLIB
  4. APIXABAN [Concomitant]
     Active Substance: APIXABAN

REACTIONS (4)
  - Breast cancer metastatic [Unknown]
  - Pneumonia [Unknown]
  - Myelosuppression [Unknown]
  - Pleural effusion [Unknown]
